FAERS Safety Report 13671812 (Version 2)
Quarter: 2017Q4

REPORT INFORMATION
  Report Type: Spontaneous
  Country: GB (occurrence: GB)
  Receive Date: 20170620
  Receipt Date: 20171020
  Transmission Date: 20180320
  Serious: Yes (Hospitalization, Other)
  Sender: FDA-Public Use
  Company Number: GB-TAKEDA-2017TEU002545

PATIENT
  Age: 95 Year
  Sex: Female
  Weight: 45 kg

DRUGS (1)
  1. VIPIDIA [Suspect]
     Active Substance: ALOGLIPTIN BENZOATE
     Indication: DIABETES MELLITUS
     Dosage: 12.5 UG, UNK
     Route: 048

REACTIONS (12)
  - Hyperglycaemia [Unknown]
  - C-reactive protein increased [Recovered/Resolved]
  - Drug ineffective [Unknown]
  - Hospitalisation [Unknown]
  - Malaise [Recovered/Resolved]
  - White blood cell count increased [Recovered/Resolved]
  - Pneumonia aspiration [Recovered/Resolved]
  - Hypoglycaemia [Unknown]
  - Cough [Recovered/Resolved]
  - Eating disorder [Recovered/Resolved]
  - Lung consolidation [Recovered/Resolved]
  - Blood magnesium decreased [Recovered/Resolved]

NARRATIVE: CASE EVENT DATE: 20170604
